FAERS Safety Report 9445449 (Version 4)
Quarter: 2014Q1

REPORT INFORMATION
  Report Type: Report from Study
  Country: CA (occurrence: CA)
  Receive Date: 20130807
  Receipt Date: 20140226
  Transmission Date: 20141002
  Serious: Yes (Hospitalization)
  Sender: FDA-Public Use
  Company Number: CA-JNJFOC-20130719127

PATIENT
  Sex: Female
  Weight: 63.5 kg

DRUGS (6)
  1. REMICADE [Suspect]
     Indication: CROHN^S DISEASE
     Route: 042
     Dates: start: 20131228
  2. REMICADE [Suspect]
     Indication: CROHN^S DISEASE
     Dosage: WITH BIOCLIN
     Route: 042
     Dates: start: 20100819
  3. REMICADE [Suspect]
     Indication: CROHN^S DISEASE
     Route: 042
     Dates: start: 201307
  4. RANITIDINE [Suspect]
     Indication: GASTROOESOPHAGEAL REFLUX DISEASE
     Route: 065
  5. BENADRYL [Suspect]
     Indication: PREMEDICATION
     Route: 065
  6. MULTIVITAMINS [Concomitant]
     Route: 065

REACTIONS (5)
  - Exposure during pregnancy [Recovered/Resolved]
  - Nephrolithiasis [Unknown]
  - Haemorrhage [Recovered/Resolved]
  - Subchorionic haematoma [Unknown]
  - General physical condition abnormal [Unknown]
